FAERS Safety Report 6392915-2 (Version None)
Quarter: 2009Q4

REPORT INFORMATION
  Report Type: 
  Country: None (occurrence: None)
  Receive Date: 20091007
  Receipt Date: 20090916
  Transmission Date: 20100525
  Serious: No
  Sender: FDA-Public Use
  Company Number: US-ALLERGAN-0912972US

PATIENT
  Age: 75 Year
  Sex: Female

DRUGS (2)
  1. LATISSE [Suspect]
     Indication: DRUG USE FOR UNKNOWN INDICATION
     Dosage: UNK
     Route: 061
  2. OTHER EYE MEDICATIONS [Suspect]
     Indication: DRUG USE FOR UNKNOWN INDICATION
     Route: 047

REACTIONS (4)
  - DRUG INTERACTION [None]
  - ERYTHEMA [None]
  - EYE SWELLING [None]
  - SKIN HYPERPIGMENTATION [None]
